FAERS Safety Report 12127219 (Version 1)
Quarter: 2016Q1

REPORT INFORMATION
  Report Type: Spontaneous
  Country: FR (occurrence: FR)
  Receive Date: 20160229
  Receipt Date: 20160229
  Transmission Date: 20160526
  Serious: Yes (Other)
  Sender: FDA-Public Use
  Company Number: FR-SHIRE-FR201602010

PATIENT
  Sex: Female

DRUGS (2)
  1. XAGRID [Suspect]
     Active Substance: ANAGRELIDE HYDROCHLORIDE
     Indication: ESSENTIAL THROMBOCYTHAEMIA
     Dosage: 1.5 MG (3 CAPSULES), 2X/DAY:BID (MORNING AND EVENING)
     Route: 048
     Dates: start: 201502
  2. XAGRID [Suspect]
     Active Substance: ANAGRELIDE HYDROCHLORIDE
     Dosage: 1 MG (2 CAPSULES), 2X/DAY:BID (MORNING AND EVENING)
     Route: 048
     Dates: start: 2013

REACTIONS (1)
  - Eosinophilic colitis [Unknown]
